FAERS Safety Report 6317220-1 (Version None)
Quarter: 2009Q3

REPORT INFORMATION
  Report Type: 
  Country: None (occurrence: None)
  Receive Date: 20090819
  Receipt Date: 20090806
  Transmission Date: 20100115
  Serious: Yes (Other)
  Sender: FDA-Public Use
  Company Number: 2009SP002033

PATIENT
  Age: 51 Year
  Sex: Male
  Weight: 83.9 kg

DRUGS (7)
  1. OMNARIS [Suspect]
     Indication: NOCTURNAL DYSPNOEA
     Dosage: 200 UG; HS; NASAL
     Route: 045
     Dates: start: 20090601, end: 20090726
  2. OMNARIS [Suspect]
     Indication: SEASONAL ALLERGY
     Dosage: 200 UG; HS; NASAL
     Route: 045
     Dates: start: 20090601, end: 20090726
  3. QUINAGLUTE [Concomitant]
  4. NEXIUM [Concomitant]
  5. DIGOXIN [Concomitant]
  6. ZOCOR [Concomitant]
  7. WARFARIN [Concomitant]

REACTIONS (1)
  - ATRIAL FLUTTER [None]
